FAERS Safety Report 7393043-X (Version None)
Quarter: 2011Q2

REPORT INFORMATION
  Report Type: 
  Country: None (occurrence: None)
  Receive Date: 20110404
  Receipt Date: 20110325
  Transmission Date: 20111010
  Serious: Yes (Hospitalization)
  Sender: FDA-Public Use
  Company Number: CN-ASTRAZENECA-2011SE16282

PATIENT
  Age: 61 Year
  Sex: Male

DRUGS (14)
  1. RHINOCORT [Suspect]
     Indication: RHINITIS ALLERGIC
     Route: 045
     Dates: start: 20101101
  2. RHINOCORT [Suspect]
     Dosage: 128 UG EVERY TWO DAYS OR SOMETIMES PATIENT TAKES IT
     Route: 045
     Dates: start: 20101101
  3. TAMSULOSIN HYDROCHLORIDE [Concomitant]
     Indication: PROSTATITIS
  4. PLAVIX [Concomitant]
     Indication: THROMBOSIS PROPHYLAXIS
  5. LONGBIZHI [Concomitant]
     Indication: PROSTATITIS
  6. LONGBISHU [Concomitant]
     Indication: PROSTATITIS
  7. VASOREL [Concomitant]
     Indication: DIZZINESS
  8. CANGERZIBIYAN [Concomitant]
     Dates: start: 20101101
  9. ROSUVASTATIN [Concomitant]
     Indication: HYPERCHOLESTEROLAEMIA
  10. PLENDIL [Concomitant]
  11. PROSCAR [Concomitant]
     Indication: PROSTATITIS
  12. DICLOFENAC [Concomitant]
     Indication: RHEUMATOID ARTHRITIS
  13. ASPIRIN [Concomitant]
  14. ISOSORBIDE MONONITRATE [Concomitant]
     Indication: ANGINA PECTORIS

REACTIONS (13)
  - RASH PRURITIC [None]
  - GAIT DISTURBANCE [None]
  - DRY THROAT [None]
  - DRY MOUTH [None]
  - EPISTAXIS [None]
  - HYPOAESTHESIA [None]
  - LIP DRY [None]
  - CHOKING SENSATION [None]
  - CARDIAC DISORDER [None]
  - DYSPNOEA [None]
  - GASTRIC DISORDER [None]
  - PALPITATIONS [None]
  - PRODUCTIVE COUGH [None]
